FAERS Safety Report 17160737 (Version 1)
Quarter: 2019Q4

REPORT INFORMATION
  Report Type: Report from Study
  Country: CZ (occurrence: CZ)
  Receive Date: 20191216
  Receipt Date: 20191216
  Transmission Date: 20200122
  Serious: Yes (Death, Life-Threatening, Other)
  Sender: FDA-Public Use
  Company Number: CZ-PFIZER INC-2019539005

PATIENT
  Sex: Male

DRUGS (2)
  1. MEPACT [Concomitant]
     Active Substance: MIFAMURTIDE
     Indication: OSTEOSARCOMA
     Dosage: UNK
  2. DOXORUBICIN HCL [Suspect]
     Active Substance: DOXORUBICIN HYDROCHLORIDE
     Indication: OSTEOSARCOMA
     Dosage: UNK

REACTIONS (1)
  - Cardiotoxicity [Fatal]
